FAERS Safety Report 18954967 (Version 5)
Quarter: 2022Q3

REPORT INFORMATION
  Report Type: Report from Study
  Country: RU (occurrence: RU)
  Receive Date: 20210301
  Receipt Date: 20220928
  Transmission Date: 20221026
  Serious: Yes (Hospitalization)
  Sender: FDA-Public Use
  Company Number: RU-ABBVIE-21K-251-3793125-00

PATIENT
  Age: 67 Year
  Sex: Female
  Weight: 70 kg

DRUGS (26)
  1. VENCLEXTA [Suspect]
     Active Substance: VENETOCLAX
     Indication: Acute myeloid leukaemia
     Dosage: 400 MILLIGRAM
     Route: 048
     Dates: start: 20201013
  2. VENCLEXTA [Suspect]
     Active Substance: VENETOCLAX
     Indication: Acute myeloid leukaemia
     Dosage: 400 MILLIGRAM
     Route: 048
     Dates: start: 20201117, end: 20201214
  3. VENCLEXTA [Suspect]
     Active Substance: VENETOCLAX
     Indication: Acute myeloid leukaemia
     Dosage: 400 MILLIGRAM
     Route: 048
     Dates: start: 20201219, end: 20210115
  4. VENCLEXTA [Suspect]
     Active Substance: VENETOCLAX
     Indication: Acute myeloid leukaemia
     Dosage: 400 MILLIGRAM
     Route: 048
     Dates: start: 20210118, end: 20210215
  5. VENCLEXTA [Suspect]
     Active Substance: VENETOCLAX
     Indication: Acute myeloid leukaemia
     Dosage: 400 MILLIGRAM
     Route: 048
     Dates: start: 20210305, end: 20210402
  6. VENCLEXTA [Suspect]
     Active Substance: VENETOCLAX
     Indication: Acute myeloid leukaemia
     Dosage: 400 MILLIGRAM
     Route: 048
     Dates: start: 20210408, end: 20210506
  7. VENCLEXTA [Suspect]
     Active Substance: VENETOCLAX
     Indication: Acute myeloid leukaemia
     Dosage: 400 MILLIGRAM
     Route: 048
     Dates: start: 20210604, end: 20210702
  8. VENCLEXTA [Suspect]
     Active Substance: VENETOCLAX
     Indication: Acute myeloid leukaemia
     Dosage: 400 MILLIGRAM
     Route: 048
     Dates: start: 20210722, end: 20210819
  9. VENCLEXTA [Suspect]
     Active Substance: VENETOCLAX
     Indication: Acute myeloid leukaemia
     Dosage: 400 MILLIGRAM
     Route: 048
     Dates: start: 20210907, end: 20211004
  10. VENCLEXTA [Suspect]
     Active Substance: VENETOCLAX
     Indication: Acute myeloid leukaemia
     Dosage: 400 MILLIGRAM
     Route: 048
     Dates: start: 20211006, end: 20211103
  11. VENCLEXTA [Suspect]
     Active Substance: VENETOCLAX
     Indication: Acute myeloid leukaemia
     Dosage: 400 MILLIGRAM
     Route: 048
     Dates: start: 20211119, end: 20211217
  12. VENCLEXTA [Suspect]
     Active Substance: VENETOCLAX
     Indication: Acute myeloid leukaemia
     Route: 048
     Dates: start: 2021, end: 20211209
  13. ALLOPURINOL [Concomitant]
     Active Substance: ALLOPURINOL
     Indication: Prophylaxis
     Dosage: 100 MG
     Route: 048
     Dates: start: 20201013, end: 20201117
  14. leukostim (filgrastim) [Concomitant]
     Indication: Neutropenia
     Dosage: 480 MCG
     Route: 058
     Dates: start: 20211210, end: 20211228
  15. Vidaza (Azacitidin) [Concomitant]
     Indication: Acute myeloid leukaemia
     Dosage: 135 MILLIGRAM
     Dates: start: 20201117, end: 20201123
  16. Vidaza (Azacitidin) [Concomitant]
     Indication: Acute myeloid leukaemia
     Dosage: 135 MILLIGRAM
     Dates: start: 20210408, end: 20210414
  17. Vidaza (Azacitidin) [Concomitant]
     Indication: Acute myeloid leukaemia
     Dosage: 135 MILLIGRAM
     Dates: start: 20210118, end: 20210124
  18. Vidaza (Azacitidin) [Concomitant]
     Indication: Acute myeloid leukaemia
     Dosage: 135 MILLIGRAM
     Dates: start: 20211119, end: 20211125
  19. Vidaza (Azacitidin) [Concomitant]
     Indication: Acute myeloid leukaemia
     Dosage: 135 MILLIGRAM
     Dates: start: 20210305, end: 20210311
  20. Vidaza (Azacitidin) [Concomitant]
     Indication: Acute myeloid leukaemia
     Dosage: 135 MILLIGRAM
     Dates: start: 20210907, end: 20210913
  21. Vidaza (Azacitidin) [Concomitant]
     Indication: Acute myeloid leukaemia
     Dosage: 135 MILLIGRAM
     Dates: start: 20201219, end: 20201225
  22. Vidaza (Azacitidin) [Concomitant]
     Indication: Acute myeloid leukaemia
     Dosage: 135 MILLIGRAM
     Dates: start: 20211006, end: 20211012
  23. Vidaza (Azacitidin) [Concomitant]
     Indication: Acute myeloid leukaemia
     Dosage: 135 MILLIGRAM
     Dates: start: 20201013, end: 20201019
  24. Vidaza (Azacitidin) [Concomitant]
     Indication: Acute myeloid leukaemia
     Dosage: 135 MILLIGRAM
     Dates: start: 20210722, end: 20210728
  25. Vidaza (Azacitidin) [Concomitant]
     Indication: Acute myeloid leukaemia
     Dosage: 135 MILLIGRAM
     Dates: start: 20210604, end: 20210610
  26. ACYCLOVIR [Concomitant]
     Active Substance: ACYCLOVIR
     Indication: Antiviral prophylaxis
     Dosage: ONGOING?400 MG
     Route: 048
     Dates: start: 20201013

REACTIONS (2)
  - COVID-19 pneumonia [Recovered/Resolved]
  - Neutropenia [Recovered/Resolved]

NARRATIVE: CASE EVENT DATE: 20210211
